FAERS Safety Report 20945050 (Version 2)
Quarter: 2022Q2

REPORT INFORMATION
  Report Type: Spontaneous
  Country: US (occurrence: US)
  Receive Date: 20220610
  Receipt Date: 20220623
  Transmission Date: 20220720
  Serious: No
  Sender: FDA-Public Use
  Company Number: US-BEH-2022146209

PATIENT
  Age: 60 Year
  Sex: Female
  Weight: 78.005 kg

DRUGS (6)
  1. HIZENTRA [Suspect]
     Active Substance: HUMAN IMMUNOGLOBULIN G
     Indication: Chronic inflammatory demyelinating polyradiculoneuropathy
     Dosage: 10 GRAM, QW
     Route: 058
     Dates: start: 20220512, end: 20220526
  2. LIDOCAINE [Concomitant]
     Active Substance: LIDOCAINE
     Indication: Premedication
     Dosage: 30 GRAM
  3. DIPHENHYDRAMINE [Concomitant]
     Active Substance: DIPHENHYDRAMINE
     Indication: Premedication
     Dosage: 50 MILLIGRAM
     Route: 048
     Dates: start: 20220531
  4. ACETAMINOPHEN [Concomitant]
     Active Substance: ACETAMINOPHEN
     Indication: Premedication
     Dosage: 975 MILLIGRAM
     Route: 048
     Dates: start: 20220531
  5. METHYLPREDNISOLONE [Concomitant]
     Active Substance: METHYLPREDNISOLONE
     Indication: Premedication
     Dosage: 250 MILLIGRAM
     Route: 042
     Dates: start: 20220531
  6. SODIUM CHLORIDE [Concomitant]
     Active Substance: SODIUM CHLORIDE
     Indication: Premedication
     Dosage: 500 MILLILITER
     Dates: start: 20220531

REACTIONS (2)
  - Pruritus [Recovered/Resolved]
  - Migraine [Recovered/Resolved]

NARRATIVE: CASE EVENT DATE: 20220526
